FAERS Safety Report 8571190 (Version 2)
Quarter: 2013Q1

REPORT INFORMATION
  Report Type: Spontaneous
  Country: US (occurrence: US)
  Receive Date: 20120521
  Receipt Date: 20130115
  Transmission Date: 20140127
  Serious: Yes (Hospitalization, Other)
  Sender: FDA-Public Use
  Company Number: US-US-EMD SERONO, INC.-7133084

PATIENT
  Age: 42 None
  Sex: Female
  Weight: 91 kg

DRUGS (6)
  1. REBIF [Suspect]
     Indication: MULTIPLE SCLEROSIS
     Route: 058
     Dates: start: 20050524
  2. REBIF [Suspect]
     Dates: start: 20120510
  3. BACLOFEN [Concomitant]
     Indication: PAIN
  4. CYMBALTA [Concomitant]
     Indication: PAIN
  5. GABAPENTIN [Concomitant]
     Indication: BURNING SENSATION
  6. NABUMETONE [Concomitant]
     Indication: PAIN

REACTIONS (4)
  - Bacteraemia [Recovering/Resolving]
  - Glaucoma [Recovering/Resolving]
  - Multiple sclerosis relapse [Recovered/Resolved]
  - Injection site infection [Recovering/Resolving]
